FAERS Safety Report 5630370-8 (Version None)
Quarter: 2008Q1

REPORT INFORMATION
  Report Type: 
  Country: None (occurrence: None)
  Receive Date: 20080219
  Receipt Date: 20080211
  Transmission Date: 20080703
  Serious: Yes (Hospitalization)
  Sender: FDA-Public Use
  Company Number: PHRM2008FR00805

PATIENT
  Age: 60 Year
  Sex: Male

DRUGS (11)
  1. PARLODEL [Suspect]
     Dosage: 40 MG/DAY
     Route: 048
     Dates: start: 19970101, end: 20070301
  2. COMTAN [Concomitant]
     Dosage: 200 MG, TID
     Route: 048
  3. MODOPAR [Concomitant]
     Dosage: (12.5 + 50) TID
     Route: 048
  4. STAGID [Concomitant]
     Dosage: 700 MG, BID
     Route: 048
  5. NOVONORM [Concomitant]
     Dosage: 6 MG/DAY
     Route: 048
  6. ALLOPURINOL [Concomitant]
  7. LIPANTHYL [Concomitant]
  8. SOTALOL HCL [Concomitant]
  9. TAMSULOSIN HCL [Concomitant]
  10. TEMESTA [Concomitant]
  11. STILNOX [Concomitant]

REACTIONS (4)
  - HYPERPHAGIA [None]
  - INSOMNIA [None]
  - PATHOLOGICAL GAMBLING [None]
  - WEIGHT INCREASED [None]
